FAERS Safety Report 15810535 (Version 1)
Quarter: 2019Q1

REPORT INFORMATION
  Report Type: Spontaneous
  Country: US (occurrence: US)
  Receive Date: 20190111
  Receipt Date: 20190111
  Transmission Date: 20190417
  Serious: No
  Sender: FDA-Public Use
  Company Number: US-ROCHE-2167464

PATIENT
  Sex: Female

DRUGS (5)
  1. ETOPOSIDE. [Concomitant]
     Active Substance: ETOPOSIDE
  2. NEUPOGEN [Concomitant]
     Active Substance: FILGRASTIM
  3. BENADRYL [Concomitant]
     Active Substance: DIPHENHYDRAMINE HYDROCHLORIDE
  4. DECADRON [Concomitant]
     Active Substance: DEXAMETHASONE
  5. RITUXAN [Suspect]
     Active Substance: RITUXIMAB
     Indication: LIP NEOPLASM MALIGNANT STAGE UNSPECIFIED
     Dosage: START DATE: 3 MONTHS, ONGOING
     Route: 042

REACTIONS (4)
  - Pain [Recovered/Resolved]
  - Paraesthesia [Recovered/Resolved]
  - Intentional product use issue [Unknown]
  - Off label use [Unknown]
